FAERS Safety Report 16756122 (Version 1)
Quarter: 2019Q3

REPORT INFORMATION
  Report Type: Spontaneous
  Country: FR (occurrence: FR)
  Receive Date: 20190829
  Receipt Date: 20190829
  Transmission Date: 20191005
  Serious: Yes (Life-Threatening, Hospitalization)
  Sender: FDA-Public Use
  Company Number: FR-BAUSCH-BL-2019-024483

PATIENT
  Age: 53 Year
  Sex: Female
  Weight: 97 kg

DRUGS (3)
  1. VENLAFAXINE [Suspect]
     Active Substance: VENLAFAXINE HYDROCHLORIDE
     Indication: POISONING DELIBERATE
     Dosage: 1 (UNITS UNSPECIFIED), TOTAL
     Route: 048
     Dates: start: 20181231, end: 20181231
  2. LAROXYL [Suspect]
     Active Substance: AMITRIPTYLINE HYDROCHLORIDE
     Indication: POISONING DELIBERATE
     Dosage: 1 (TOTAL), DRINKABLE SOLUTION
     Route: 048
     Dates: start: 20181231, end: 20181231
  3. PARACETAMOL [Suspect]
     Active Substance: ACETAMINOPHEN
     Indication: POISONING DELIBERATE
     Dosage: TOTAL
     Route: 048
     Dates: start: 20181231, end: 20181231

REACTIONS (3)
  - Coma [Recovered/Resolved]
  - Encephalopathy [Recovered/Resolved]
  - Electrocardiogram QRS complex prolonged [Recovered/Resolved]

NARRATIVE: CASE EVENT DATE: 20181231
